FAERS Safety Report 6404637-X (Version None)
Quarter: 2009Q4

REPORT INFORMATION
  Report Type: 
  Country: None (occurrence: None)
  Receive Date: 20091016
  Receipt Date: 20090917
  Transmission Date: 20100525
  Serious: No
  Sender: FDA-Public Use
  Company Number: US-BAYER-200912903BCC

PATIENT
  Age: 79 Year
  Sex: Female
  Weight: 72 kg

DRUGS (12)
  1. ALEVE [Suspect]
     Indication: ARTHRALGIA
     Dosage: TOTAL DAILY DOSE: 440 MG  UNIT DOSE: 220 MG
     Route: 048
     Dates: start: 20090810, end: 20090801
  2. NATURES BOUNTY LUTEIN [Concomitant]
     Route: 065
  3. CITRACAL MAXIMUM [Concomitant]
     Dosage: UNIT DOSE: 1 DF
     Route: 065
  4. PRILOSEC [Concomitant]
     Route: 065
  5. PRESCRIPTION VITAMIN D [Concomitant]
     Route: 065
  6. SUNDOWN WOMENS 50 PLUS MULTIVITAMIN [Concomitant]
     Route: 065
  7. SUNDOWN BILLBERRY [Concomitant]
     Route: 065
  8. FLEXEMIN [Concomitant]
     Route: 065
  9. OCUVITE ADULT 50 PLUS [Concomitant]
     Dosage: TOTAL DAILY DOSE: 1 DF  UNIT DOSE: 1 DF
     Route: 065
  10. BONIVA [Concomitant]
     Route: 065
  11. OSTEO BI-FLEX [Concomitant]
     Dosage: UNIT DOSE: 1 DF
     Route: 065
  12. ACIPHEX [Concomitant]
     Indication: HIATUS HERNIA
     Dosage: TOTAL DAILY DOSE: 20 MG  UNIT DOSE: 20 MG
     Route: 065

REACTIONS (5)
  - BLOOD CHOLESTEROL INCREASED [None]
  - BLOOD PRESSURE INCREASED [None]
  - DIZZINESS [None]
  - SLEEP DISORDER [None]
  - VERTIGO [None]
